FAERS Safety Report 13048690 (Version 1)
Quarter: 2016Q4

REPORT INFORMATION
  Report Type: Spontaneous
  Country: US (occurrence: US)
  Receive Date: 20161220
  Receipt Date: 20161220
  Transmission Date: 20170207
  Serious: Yes (Death)
  Sender: FDA-Public Use
  Company Number: None

PATIENT
  Age: 76 Year
  Sex: Male
  Weight: 89.44 kg

DRUGS (3)
  1. XARELTO [Suspect]
     Active Substance: RIVAROXABAN
     Indication: ATRIAL FIBRILLATION
     Dates: start: 2014, end: 20160214
  2. XARELTO [Suspect]
     Active Substance: RIVAROXABAN
     Indication: LUNG NEOPLASM MALIGNANT
     Dates: start: 2014, end: 20160214
  3. XARELTO [Suspect]
     Active Substance: RIVAROXABAN
     Indication: DIABETES MELLITUS
     Dates: start: 2014, end: 20160214

REACTIONS (1)
  - Death [None]

NARRATIVE: CASE EVENT DATE: 20160214
